FAERS Safety Report 14293279 (Version 1)
Quarter: 2017Q4

REPORT INFORMATION
  Report Type: Spontaneous
  Country: JP (occurrence: JP)
  Receive Date: 20171215
  Receipt Date: 20171215
  Transmission Date: 20180321
  Serious: Yes (Other)
  Sender: FDA-Public Use
  Company Number: JP-BAUSCH-BL-2017-033888

PATIENT
  Age: 12 Year
  Sex: Female

DRUGS (2)
  1. ALL-TRANS RETINOIC ACID [Suspect]
     Active Substance: TRETINOIN
     Indication: ACUTE PROMYELOCYTIC LEUKAEMIA
     Route: 065
  2. ALL-TRANS RETINOIC ACID [Suspect]
     Active Substance: TRETINOIN
     Dosage: REDUCED DOSE, RESTARTED ON THE 14TH DAY
     Route: 065

REACTIONS (1)
  - Pancreatitis acute [Recovered/Resolved]
